FAERS Safety Report 5154901-X (Version None)
Quarter: 2006Q4

REPORT INFORMATION
  Report Type: 
  Country: None (occurrence: None)
  Receive Date: 20061117
  Receipt Date: 20061117
  Transmission Date: 20070319
  Serious: No
  Sender: FDA-Public Use
  Company Number: None

PATIENT
  Age: 33 Year
  Sex: Female
  Weight: 62.5964 kg

DRUGS (5)
  1. ACETAMINOPHEN [Suspect]
     Indication: COELIAC DISEASE
     Dosage: 500MG   3 TIMES DAILY   ORALLY
     Route: 048
     Dates: start: 20061110, end: 20061112
  2. LEVOTHYROXINE SODIUM [Concomitant]
  3. ANTACID TAB [Concomitant]
  4. PRILOSEC [Concomitant]
  5. GEN-ADDERAL [Concomitant]

REACTIONS (6)
  - DIZZINESS [None]
  - GASTRIC DISORDER [None]
  - LETHARGY [None]
  - MUSCLE CONTRACTURE [None]
  - MUSCLE SPASMS [None]
  - SOMNOLENCE [None]
